FAERS Safety Report 17535543 (Version 2)
Quarter: 2020Q2

REPORT INFORMATION
  Report Type: Report from Study
  Country: US (occurrence: US)
  Receive Date: 20200313
  Receipt Date: 20200402
  Transmission Date: 20200713
  Serious: Yes (Death)
  Sender: FDA-Public Use
  Company Number: US-ROCHE-2564182

PATIENT
  Sex: Female
  Weight: 98.88 kg

DRUGS (19)
  1. NEULASTA [Concomitant]
     Active Substance: PEGFILGRASTIM
     Dosage: 6 MG/0.6 ML INJECTION
     Route: 065
  2. LASIX [Concomitant]
     Active Substance: FUROSEMIDE
     Route: 065
     Dates: start: 20190626
  3. LEVOFLOXACIN. [Concomitant]
     Active Substance: LEVOFLOXACIN
     Dosage: ONE TABLET DAILY FOR 7 DAYS
     Route: 065
     Dates: start: 20190529
  4. VEPESID [Concomitant]
     Active Substance: ETOPOSIDE
     Route: 040
  5. TECENTRIQ [Suspect]
     Active Substance: ATEZOLIZUMAB
     Indication: LUNG NEOPLASM MALIGNANT
     Dosage: 20 ML (1200 MG TOTAL) INTO A VENOUS CATHETER EVERY 21 DAYS
     Route: 042
     Dates: start: 20190116
  6. LOPERAMIDE [Concomitant]
     Active Substance: LOPERAMIDE
     Dosage: 2 TABLET BY MOUTH AT THE ONSET OF DIARRHEA. THEN 1 TABLET BY MOUTH EVERY 2 HOURS UNTILL DIARRHEA FRE
     Route: 065
     Dates: start: 20190614
  7. PROCHLORPERAZINE. [Concomitant]
     Active Substance: PROCHLORPERAZINE
     Dosage: 1 TABLET BY MOUTH EVERY 8 HOURS AS NEEDED FOR NAUSEA
     Route: 048
     Dates: start: 20190612, end: 20190712
  8. PEPCID [Concomitant]
     Active Substance: FAMOTIDINE
     Route: 065
  9. DUONEB [Concomitant]
     Active Substance: ALBUTEROL SULFATE\IPRATROPIUM BROMIDE
     Indication: WHEEZING
     Dosage: 3 ML BY NEBULIZATION EVERY 6 HOURS AS NEEDED
     Route: 065
     Dates: start: 20190320
  10. PARAPLATIN [Concomitant]
     Active Substance: CARBOPLATIN
     Route: 040
  11. APIXABAN [Concomitant]
     Active Substance: APIXABAN
     Dosage: 10 MG (2 TABLETS) BY MOUTH TWICE A DAY THROUGH 14/JAN/2019 THEN ON 15/JAN/2019, START 5 MG BY MOUTH
     Route: 048
     Dates: start: 20190108
  12. HYDRODIURIL [Concomitant]
     Active Substance: HYDROCHLOROTHIAZIDE
     Dosage: 1 TABLET BY MOUTH DAILY
     Route: 065
     Dates: start: 20190307
  13. HYDROCODONE/ACETAMINOPHEN [Concomitant]
     Active Substance: ACETAMINOPHEN\HYDROCODONE
     Route: 065
     Dates: start: 20190304
  14. MEDROL [Concomitant]
     Active Substance: METHYLPREDNISOLONE
     Dosage: 6 TABLETS DAY ONE, 5 TABLETS DAY TWO, 4 TABLETS DAY THREE, 3 TABLETS DAY FOUR, 2 TABLETS DAY FIVE AN
     Route: 065
     Dates: start: 20190529
  15. DEXAMETHASONE. [Concomitant]
     Active Substance: DEXAMETHASONE
     Dosage: 1 TABLET 2 TIMES A DAY WITH MEAL
     Route: 065
  16. ALBUTEROL HFA [Concomitant]
     Active Substance: ALBUTEROL SULFATE
     Route: 065
     Dates: start: 20190422
  17. ZOFRAN [Concomitant]
     Active Substance: ONDANSETRON HYDROCHLORIDE
     Dosage: 1 TABLET BY MOUTH EVERY 8 HOURS AS NEEDED FOR NAUSEA OR VOMITING.
     Route: 048
     Dates: start: 20190612, end: 20190712
  18. DUONEB [Concomitant]
     Active Substance: ALBUTEROL SULFATE\IPRATROPIUM BROMIDE
     Indication: DYSPNOEA
  19. ACETAMINOPHEN. [Concomitant]
     Active Substance: ACETAMINOPHEN
     Dosage: 2 TABLETS EVERY 6 HOURS AS NEEDED
     Route: 065

REACTIONS (1)
  - Neutropenic colitis [Fatal]
